FAERS Safety Report 10684766 (Version 1)
Quarter: 2014Q4

REPORT INFORMATION
  Report Type: Spontaneous
  Country: US (occurrence: None)
  Receive Date: 20141230
  Receipt Date: 20141230
  Transmission Date: 20150529
  Serious: Yes (Life-Threatening, Hospitalization, Other)
  Sender: FDA-Public Use
  Company Number: None

PATIENT
  Age: 26 Year
  Sex: Female
  Weight: 56.25 kg

DRUGS (1)
  1. DYSPORT [Suspect]
     Active Substance: ABOBOTULINUMTOXINA
     Indication: SKIN COSMETIC PROCEDURE
     Dosage: ONE TIME DOSE/GIVEN INTO UNDER THE SKIN
     Dates: start: 20141215

REACTIONS (9)
  - Syncope [None]
  - Confusional state [None]
  - Blindness transient [None]
  - Migraine [None]
  - Pneumonia [None]
  - Encephalitis [None]
  - Deafness [None]
  - Malaise [None]
  - Autoimmune disorder [None]

NARRATIVE: CASE EVENT DATE: 20141215
